FAERS Safety Report 11324391 (Version 1)
Quarter: 2015Q3

REPORT INFORMATION
  Report Type: Spontaneous
  Country: FR (occurrence: FR)
  Receive Date: 20150730
  Receipt Date: 20150730
  Transmission Date: 20151125
  Serious: Yes (Hospitalization, Other)
  Sender: FDA-Public Use
  Company Number: FR-BRISTOL-MYERS SQUIBB COMPANY-BMS-2015-048320

PATIENT
  Age: 49 Year
  Sex: Male
  Weight: 70 kg

DRUGS (6)
  1. VIRAMUNE [Suspect]
     Active Substance: NEVIRAPINE
     Indication: HIV INFECTION
     Dosage: 400 MG, QD
     Route: 048
  2. REYATAZ [Suspect]
     Active Substance: ATAZANAVIR SULFATE
     Indication: HIV INFECTION
     Dosage: 1 DF, QD
     Route: 048
  3. VIREAD [Suspect]
     Active Substance: TENOFOVIR DISOPROXIL FUMARATE
     Indication: HIV INFECTION
     Dosage: 245 MG, QD
     Route: 048
  4. NORVIR [Suspect]
     Active Substance: RITONAVIR
     Indication: HIV INFECTION
     Dosage: 1 DF, QD
     Route: 048
  5. ZELITREX [Suspect]
     Active Substance: VALACYCLOVIR HYDROCHLORIDE
     Indication: HERPES VIRUS INFECTION
     Dosage: 500 MG, PRN
     Route: 048
  6. UVEDOSE [Suspect]
     Active Substance: CHOLECALCIFEROL
     Indication: HERPES VIRUS INFECTION
     Dosage: 1 DF, Q3MO
     Route: 065

REACTIONS (4)
  - Pneumonia aspiration [Unknown]
  - Blood osmolarity [Recovered/Resolved]
  - Hyponatraemia [Recovered/Resolved]
  - Coma [Recovered/Resolved]

NARRATIVE: CASE EVENT DATE: 20150316
